FAERS Safety Report 9287462 (Version 1)
Quarter: 2013Q2

REPORT INFORMATION
  Report Type: Spontaneous
  Country: US (occurrence: US)
  Receive Date: 20130514
  Receipt Date: 20130514
  Transmission Date: 20140414
  Serious: Yes (Hospitalization)
  Sender: FDA-Public Use
  Company Number: US-AMGEN-USASP2013032650

PATIENT
  Age: 81 Year
  Sex: Female

DRUGS (10)
  1. PROLIA [Suspect]
     Indication: OSTEOPOROSIS POSTMENOPAUSAL
     Dosage: 60 MG, Q6MO
     Dates: start: 20130425
  2. ARANESP [Concomitant]
     Indication: ANAEMIA OF CHRONIC DISEASE
     Dosage: 500 MUG, Q4WK
     Route: 058
     Dates: start: 20130429
  3. MEGACE [Concomitant]
  4. CALCIUM [Concomitant]
  5. VITAMIN B12                        /00056201/ [Concomitant]
  6. VITAMIN D /00107901/ [Concomitant]
  7. LEVOTHYROXIN [Concomitant]
  8. FUROSEMIDE [Concomitant]
  9. CARDURA [Concomitant]
  10. AMLODIPINE [Concomitant]

REACTIONS (2)
  - Dyspnoea [Unknown]
  - Hypocalcaemia [Recovered/Resolved]
